FAERS Safety Report 10359126 (Version 4)
Quarter: 2016Q2

REPORT INFORMATION
  Report Type: Spontaneous
  Country: AU (occurrence: AU)
  Receive Date: 20140804
  Receipt Date: 20160527
  Transmission Date: 20160815
  Serious: Yes (Death)
  Sender: FDA-Public Use
  Company Number: AU-009507513-1407AUS013672

PATIENT
  Age: 17 Year

DRUGS (1)
  1. ESMERON [Suspect]
     Active Substance: ROCURONIUM BROMIDE
     Dosage: DOSAGE UNKNOWN

REACTIONS (1)
  - Anaphylactic reaction [Fatal]
